FAERS Safety Report 18614965 (Version 16)
Quarter: 2025Q2

REPORT INFORMATION
  Report Type: Report from Study
  Country: US (occurrence: US)
  Receive Date: 20201214
  Receipt Date: 20250422
  Transmission Date: 20250717
  Serious: Yes (Other)
  Sender: TAKEDA
  Company Number: US-TAKEDA-2020TUS055908

PATIENT
  Sex: Female
  Weight: 77 kg

DRUGS (46)
  1. HUMAN IMMUNOGLOBULIN G\HYALURONIDASE RECOMBINANT HUMAN [Suspect]
     Active Substance: HUMAN IMMUNOGLOBULIN G\HYALURONIDASE (HUMAN RECOMBINANT)
     Indication: Immunodeficiency
     Dosage: 70 GRAM, Q4WEEKS
     Dates: start: 20150702
  2. HUMAN IMMUNOGLOBULIN G\HYALURONIDASE RECOMBINANT HUMAN [Suspect]
     Active Substance: HUMAN IMMUNOGLOBULIN G\HYALURONIDASE (HUMAN RECOMBINANT)
     Indication: Immunodeficiency common variable
  3. DIPHENHYDRAMINE [Concomitant]
     Active Substance: DIPHENHYDRAMINE
  4. NORVASC [Concomitant]
     Active Substance: AMLODIPINE BESYLATE
  5. CRANBERRY + C [Concomitant]
  6. ATIVAN [Concomitant]
     Active Substance: LORAZEPAM
  7. HYDRALAZINE [Concomitant]
     Active Substance: HYDRALAZINE HYDROCHLORIDE
  8. TRULICITY [Concomitant]
     Active Substance: DULAGLUTIDE
  9. EPINEPHRINE [Concomitant]
     Active Substance: EPINEPHRINE
  10. SYNTHROID [Concomitant]
     Active Substance: LEVOTHYROXINE SODIUM
  11. AZITHROMYCIN [Concomitant]
     Active Substance: AZITHROMYCIN
  12. CRANBERRY [Concomitant]
     Active Substance: CRANBERRY
  13. LIDOCAINE\PRILOCAINE [Concomitant]
     Active Substance: LIDOCAINE\PRILOCAINE
  14. OMEPRAZOLE [Concomitant]
     Active Substance: OMEPRAZOLE
  15. XHANCE [Concomitant]
     Active Substance: FLUTICASONE PROPIONATE
  16. OFLOXACIN [Concomitant]
     Active Substance: OFLOXACIN
  17. NUCALA [Concomitant]
     Active Substance: MEPOLIZUMAB
  18. MELATONIN [Concomitant]
     Active Substance: MELATONIN
  19. KETOROLAC TROMETHAMINE [Concomitant]
     Active Substance: KETOROLAC TROMETHAMINE
  20. ACETAMINOPHEN [Concomitant]
     Active Substance: ACETAMINOPHEN
  21. SINGULAIR [Concomitant]
     Active Substance: MONTELUKAST SODIUM
  22. SPIRONOLACTONE AND HYDROCHLOROTHIAZIDE [Concomitant]
     Active Substance: HYDROCHLOROTHIAZIDE\SPIRONOLACTONE
  23. CALCIUM CITRATE [Concomitant]
     Active Substance: CALCIUM CITRATE
  24. SODIUM CHLORIDE [Concomitant]
     Active Substance: SODIUM CHLORIDE
  25. LEVOTHYROXINE [Concomitant]
     Active Substance: LEVOTHYROXINE
  26. SIMVASTATIN [Concomitant]
     Active Substance: SIMVASTATIN
  27. GABAPENTIN [Concomitant]
     Active Substance: GABAPENTIN
  28. VITAMIN D3 [Concomitant]
     Active Substance: CHOLECALCIFEROL
  29. CYPROHEPTADINE HYDROCHLORIDE [Concomitant]
     Active Substance: CYPROHEPTADINE HYDROCHLORIDE
  30. TOPROL XL [Concomitant]
     Active Substance: METOPROLOL SUCCINATE
  31. ENTRESTO [Concomitant]
     Active Substance: SACUBITRIL\VALSARTAN
  32. JANUVIA [Concomitant]
     Active Substance: SITAGLIPTIN PHOSPHATE
  33. GLIPIZIDE [Concomitant]
     Active Substance: GLIPIZIDE
  34. DULERA [Concomitant]
     Active Substance: FORMOTEROL FUMARATE DIHYDRATE\MOMETASONE FUROATE
  35. LOSARTAN [Concomitant]
     Active Substance: LOSARTAN
  36. AMERGE [Concomitant]
     Active Substance: NARATRIPTAN HYDROCHLORIDE
  37. LOSARTAN POTASSIUM [Concomitant]
     Active Substance: LOSARTAN POTASSIUM
  38. ASPIRIN [Concomitant]
     Active Substance: ASPIRIN
  39. PREDNISOLONE [Concomitant]
     Active Substance: PREDNISOLONE
  40. HYDRALAZINE HCL [Concomitant]
     Active Substance: HYDRALAZINE HYDROCHLORIDE
  41. TOPIRAMATE [Concomitant]
     Active Substance: TOPIRAMATE
  42. DICYCLOMINE HYDROCHLORIDE [Concomitant]
     Active Substance: DICYCLOMINE HYDROCHLORIDE
  43. ALLEGRA ALLERGY [Concomitant]
     Active Substance: FEXOFENADINE HYDROCHLORIDE
  44. HYDROXYCHLOROQUINE [Concomitant]
     Active Substance: HYDROXYCHLOROQUINE
  45. SYMBICORT [Concomitant]
     Active Substance: BUDESONIDE\FORMOTEROL FUMARATE DIHYDRATE
  46. DIPHENHYDRAMINE HYDROCHLORIDE [Concomitant]
     Active Substance: DIPHENHYDRAMINE HYDROCHLORIDE

REACTIONS (11)
  - Cataract [Unknown]
  - Dacryocanaliculitis [Unknown]
  - Sinusitis [Not Recovered/Not Resolved]
  - Seasonal allergy [Unknown]
  - Eye infection [Unknown]
  - Pain [Unknown]
  - Nasopharyngitis [Unknown]
  - Throat irritation [Unknown]
  - Infusion site discharge [Unknown]
  - Multiple allergies [Unknown]
  - Migraine [Unknown]
